FAERS Safety Report 23371149 (Version 2)
Quarter: 2024Q1

REPORT INFORMATION
  Report Type: Spontaneous
  Country: CA (occurrence: None)
  Receive Date: 20240105
  Receipt Date: 20240218
  Transmission Date: 20240409
  Serious: Yes (Other)
  Sender: FDA-Public Use
  Company Number: CA-PFIZER INC-202300457327

PATIENT
  Age: 35 Year
  Sex: Male

DRUGS (9)
  1. METHOTREXATE [Suspect]
     Active Substance: METHOTREXATE
     Indication: Ankylosing spondylitis
  2. HYRIMOZ [Suspect]
     Active Substance: ADALIMUMAB-ADAZ
     Indication: Ankylosing spondylitis
  3. ABILIFY MAINTENA [Concomitant]
     Active Substance: ARIPIPRAZOLE
  4. ENBREL [Concomitant]
     Active Substance: ETANERCEPT
     Indication: Ankylosing spondylitis
  5. FLURBIPROFEN [Concomitant]
     Active Substance: FLURBIPROFEN
  6. FOLIC ACID [Concomitant]
     Active Substance: FOLIC ACID
  7. FERROUS SULFATE [Concomitant]
     Active Substance: FERROUS SULFATE
  8. PREDNISONE [Concomitant]
     Active Substance: PREDNISONE
  9. PREVACID [Concomitant]
     Active Substance: LANSOPRAZOLE

REACTIONS (6)
  - Gallbladder disorder [Unknown]
  - Drug ineffective for unapproved indication [Unknown]
  - Product use in unapproved indication [Unknown]
  - Ankylosing spondylitis [Unknown]
  - Chest pain [Unknown]
  - Blood pressure diastolic increased [Unknown]
